FAERS Safety Report 15591619 (Version 3)
Quarter: 2019Q1

REPORT INFORMATION
  Report Type: Spontaneous
  Country: US (occurrence: US)
  Receive Date: 20181107
  Receipt Date: 20190318
  Transmission Date: 20190417
  Serious: Yes (Hospitalization)
  Sender: FDA-Public Use
  Company Number: US-PFIZER INC-2018444498

PATIENT
  Age: 64 Year
  Sex: Male
  Weight: 104 kg

DRUGS (1)
  1. DILANTIN [Suspect]
     Active Substance: PHENYTOIN
     Indication: INTRACRANIAL ANEURYSM
     Dosage: 600 MG, DAILY
     Route: 048

REACTIONS (1)
  - Anticonvulsant drug level decreased [Unknown]

NARRATIVE: CASE EVENT DATE: 201710
